FAERS Safety Report 22691771 (Version 7)
Quarter: 2023Q4

REPORT INFORMATION
  Report Type: Report from Study
  Country: GB (occurrence: GB)
  Receive Date: 20230711
  Receipt Date: 20231208
  Transmission Date: 20240110
  Serious: Yes (Other)
  Sender: FDA-Public Use
  Company Number: GB-ROCHE-3360392

PATIENT
  Age: 80 Year
  Sex: Male
  Weight: 76.65 kg

DRUGS (11)
  1. BEVACIZUMAB [Suspect]
     Active Substance: BEVACIZUMAB
     Indication: Hepatocellular carcinoma
     Dosage: 1100MG
     Route: 065
     Dates: start: 20230501
  2. ATEZOLIZUMAB [Suspect]
     Active Substance: ATEZOLIZUMAB
     Indication: Hepatocellular carcinoma
     Dosage: 1200MG EVERY 3 WEEKS-MOST RECENT DOSE OF STUDY DRUG ADMINISTERED ON 25/MAY/2023
     Route: 041
     Dates: start: 20230501
  3. AMLODIPINE [Concomitant]
     Active Substance: AMLODIPINE BESYLATE
     Dosage: 1X/DAY, MEDICAL HISTORY;
     Dates: start: 20200203
  4. ASPIRIN [Concomitant]
     Active Substance: ASPIRIN
     Dosage: 1X/DAY, MEDICAL HISTORY;
     Dates: start: 20130320
  5. ATORVASTATIN [Concomitant]
     Active Substance: ATORVASTATIN
     Dosage: 1X/DAY, MEDICAL HISTORY;
     Dates: start: 20150331
  6. DOXAZOSIN MESYLATE [Concomitant]
     Active Substance: DOXAZOSIN MESYLATE
     Dosage: 1X/DAY, MEDICAL HISTORY;
     Dates: start: 20230314
  7. FINASTERIDE [Concomitant]
     Active Substance: FINASTERIDE
     Dosage: 1X/DAY, MEDICAL HISTORY;
     Dates: start: 20220218
  8. LANSOPRAZOLE [Concomitant]
     Active Substance: LANSOPRAZOLE
     Dosage: 1X/DAY, MEDICAL HISTORY;
     Dates: start: 20210331
  9. LOSARTAN [Concomitant]
     Active Substance: LOSARTAN
     Dosage: 1X/DAY, MEDICAL HISTORY;
     Dates: start: 20070620
  10. CHLORPHENIRAMINE MALEATE [Concomitant]
     Active Substance: CHLORPHENIRAMINE MALEATE
     Dosage: UNK
     Dates: start: 20230615
  11. FLUOROURACIL [Concomitant]
     Active Substance: FLUOROURACIL
     Dosage: UNK
     Dates: start: 202308

REACTIONS (9)
  - Chronic kidney disease [Not Recovered/Not Resolved]
  - Blood creatine increased [Not Recovered/Not Resolved]
  - Proteinuria [Not Recovered/Not Resolved]
  - Pruritus [Not Recovered/Not Resolved]
  - Oedema peripheral [Not Recovered/Not Resolved]
  - Aspartate aminotransferase increased [Not Recovered/Not Resolved]
  - Gamma-glutamyltransferase increased [Not Recovered/Not Resolved]
  - Alanine aminotransferase increased [Not Recovered/Not Resolved]
  - Blood alkaline phosphatase increased [Not Recovered/Not Resolved]

NARRATIVE: CASE EVENT DATE: 20230524
